FAERS Safety Report 7229284-1 (Version None)
Quarter: 2011Q1

REPORT INFORMATION
  Report Type: 
  Country: None (occurrence: None)
  Receive Date: 20110117
  Receipt Date: 20110112
  Transmission Date: 20110831
  Serious: Yes (Hospitalization, Other)
  Sender: FDA-Public Use
  Company Number: US-AMGEN-USASP2011002045

PATIENT

DRUGS (23)
  1. CALCITONIN                         /00371903/ [Concomitant]
     Route: 045
  2. ALLOPURINOL [Concomitant]
  3. FERROUS SULFATE [Concomitant]
  4. PRANDIN                            /01393601/ [Concomitant]
  5. TYLENOL (CAPLET) [Concomitant]
     Dosage: 2 UNK, UNK
  6. MIRAPEX                            /01356401/ [Concomitant]
  7. ARANESP [Suspect]
     Indication: MYELODYSPLASTIC SYNDROME
     Dosage: 500 A?G, Q2WK
     Route: 058
  8. CLINDAMYCIN                        /00166002/ [Concomitant]
     Dosage: UNK UNK, PRN
  9. POTASSIUM CHLORIDE [Concomitant]
  10. DIGOXIN [Concomitant]
     Dosage: UNK
  11. RESTORIL [Concomitant]
  12. CALCIUM + VITAMIN D [Concomitant]
  13. ONDANSETRON                        /00955302/ [Concomitant]
     Dosage: UNK UNK, PRN
  14. NORVASC [Concomitant]
  15. CLONIDINE [Concomitant]
  16. BUMEX [Concomitant]
  17. OMEPRAZOLE [Concomitant]
     Dosage: UNK
  18. SIMVASTATIN [Concomitant]
     Dosage: UNK
  19. BLOOD CELLS, PACKED HUMAN [Suspect]
  20. COREG [Concomitant]
     Dosage: UNK
  21. NITROGLYCERIN ACC [Concomitant]
     Dosage: UNK UNK, PRN
     Route: 060
  22. MULTIVITAMIN                       /00097801/ [Concomitant]
     Dosage: UNK
  23. OXYCODONE AND ACETAMINOPHEN [Concomitant]

REACTIONS (7)
  - HOSPITALISATION [None]
  - ARRHYTHMIA [None]
  - HAEMORRHAGE [None]
  - BLOOD COUNT ABNORMAL [None]
  - INTESTINAL ULCER [None]
  - MEMORY IMPAIRMENT [None]
  - RENAL NEOPLASM [None]
